FAERS Safety Report 5642737-2 (Version None)
Quarter: 2008Q1

REPORT INFORMATION
  Report Type: 
  Country: None (occurrence: None)
  Receive Date: 20080227
  Receipt Date: 20080227
  Transmission Date: 20080703
  Serious: Yes (Hospitalization)
  Sender: FDA-Public Use
  Company Number: None

PATIENT
  Sex: Male
  Weight: 99.7913 kg

DRUGS (11)
  1. COUMADIN [Suspect]
     Indication: ATRIAL FIBRILLATION
     Dosage: 5MG PO QD  (THERAPY DATES: PRIOR TO ADMISSION)
     Route: 048
  2. LASIX [Concomitant]
  3. CARTIA XT [Concomitant]
  4. NIASPAN [Concomitant]
  5. LOVASTATIN [Concomitant]
  6. BENICAR [Concomitant]
  7. LISINOPRIL [Concomitant]
  8. METOPROLOL TARTRATE [Concomitant]
  9. ISOSORBIDE DINITRATE [Concomitant]
  10. ECOTRIN [Concomitant]
  11. CENTRUM [Concomitant]

REACTIONS (4)
  - EPISTAXIS [None]
  - FAECES DISCOLOURED [None]
  - HAEMORRHAGE [None]
  - SCRATCH [None]
